FAERS Safety Report 12740426 (Version 1)
Quarter: 2016Q3

REPORT INFORMATION
  Report Type: Report from Study
  Country: CO (occurrence: CO)
  Receive Date: 20160913
  Receipt Date: 20160913
  Transmission Date: 20161109
  Serious: Yes (Hospitalization, Other)
  Sender: FDA-Public Use
  Company Number: CO-ELI_LILLY_AND_COMPANY-CO201505009132

PATIENT
  Age: 86 Year
  Sex: Female
  Weight: 79 kg

DRUGS (14)
  1. GLUCERNA [Concomitant]
     Active Substance: AMINO ACIDS\DEXTROSE\ELECTROLYTES NOS\SOYBEAN OIL\VITAMINS
  2. HYDROCODONE BITARTRATE AND ACETAMINOPHEN [Concomitant]
     Active Substance: ACETAMINOPHEN\HYDROCODONE BITARTRATE
  3. CALCIUM [Concomitant]
     Active Substance: CALCIUM
  4. FORTEO [Suspect]
     Active Substance: TERIPARATIDE
     Indication: OSTEOPOROSIS
     Dosage: 20 UG, QD
     Route: 058
     Dates: start: 20150513
  5. ATORVASTATIN [Concomitant]
     Active Substance: ATORVASTATIN
     Dosage: 20 MG, QD
  6. LOSARTAN. [Concomitant]
     Active Substance: LOSARTAN
  7. LEVETIRACETAM. [Concomitant]
     Active Substance: LEVETIRACETAM
  8. ESOMEPRAZOLE [Concomitant]
     Active Substance: ESOMEPRAZOLE
  9. COLECALCIFEROL [Concomitant]
     Active Substance: CHOLECALCIFEROL
  10. PREGABALIN. [Concomitant]
     Active Substance: PREGABALIN
  11. ANEMIDOX                           /01478701/ [Concomitant]
  12. MEMANTINE. [Concomitant]
     Active Substance: MEMANTINE
  13. CARVEDILOL. [Concomitant]
     Active Substance: CARVEDILOL
     Dosage: UNK, QD
  14. SERTRALINE [Concomitant]
     Active Substance: SERTRALINE HYDROCHLORIDE
     Dosage: UNK, QD

REACTIONS (4)
  - Dizziness [Unknown]
  - Arthralgia [Unknown]
  - Nephrolithiasis [Unknown]
  - Localised infection [Not Recovered/Not Resolved]

NARRATIVE: CASE EVENT DATE: 20150513
